FAERS Safety Report 25647257 (Version 1)
Quarter: 2025Q3

REPORT INFORMATION
  Report Type: Spontaneous
  Country: EU (occurrence: EU)
  Receive Date: 20250806
  Receipt Date: 20250806
  Transmission Date: 20251020
  Serious: Yes (Other)
  Sender: ALEXION PHARMACEUTICALS
  Company Number: EU-AstraZeneca-CH-00921995A

PATIENT
  Age: 78 Year
  Sex: Male

DRUGS (1)
  1. DAPAGLIFLOZIN [Suspect]
     Active Substance: DAPAGLIFLOZIN
     Indication: Diabetes mellitus
     Route: 065
     Dates: start: 20250424, end: 20250722

REACTIONS (3)
  - Glycosylated haemoglobin increased [Unknown]
  - Blood creatinine abnormal [Unknown]
  - Glomerular filtration rate decreased [Unknown]
